FAERS Safety Report 13642351 (Version 2)
Quarter: 2017Q2

REPORT INFORMATION
  Report Type: Spontaneous
  Country: JP (occurrence: JP)
  Receive Date: 20170612
  Receipt Date: 20170627
  Transmission Date: 20170830
  Serious: Yes (Hospitalization, Other)
  Sender: FDA-Public Use
  Company Number: JP-BAYER-2017-106069

PATIENT
  Age: 35 Year
  Sex: Female

DRUGS (2)
  1. BAYASPIRIN 100 MG [Suspect]
     Active Substance: ASPIRIN
     Indication: HABITUAL ABORTION
     Dosage: 100 MG, QD
     Route: 048
  2. THYRADIN [Concomitant]
     Active Substance: LEVOTHYROXINE
     Indication: HYPOTHYROIDISM
     Route: 048

REACTIONS (6)
  - Abdominal pain [None]
  - Ectopic pregnancy [Recovered/Resolved]
  - Product use in unapproved indication [None]
  - Maternal exposure during pregnancy [Recovered/Resolved]
  - Haemorrhage in pregnancy [None]
  - Off label use [Recovered/Resolved]
